FAERS Safety Report 8209506-0 (Version None)
Quarter: 2012Q1

REPORT INFORMATION
  Report Type: 
  Country: None (occurrence: None)
  Receive Date: 20120314
  Receipt Date: 20120306
  Transmission Date: 20120608
  Serious: Yes (Hospitalization, Other)
  Sender: FDA-Public Use
  Company Number: US-ABBOTT-12P-163-0912964-00

PATIENT
  Sex: Male

DRUGS (5)
  1. IMURAN [Concomitant]
     Indication: CROHN'S DISEASE
  2. PROZAC [Concomitant]
     Indication: DEPRESSION
  3. ASACOL [Concomitant]
     Indication: CROHN'S DISEASE
  4. HUMIRA [Suspect]
  5. HUMIRA [Suspect]
     Indication: CROHN'S DISEASE
     Dates: start: 20100101

REACTIONS (12)
  - DYSPNOEA [None]
  - NAUSEA [None]
  - PYREXIA [None]
  - RIB FRACTURE [None]
  - PNEUMOTHORAX [None]
  - ARTHRITIS [None]
  - ROAD TRAFFIC ACCIDENT [None]
  - MIDDLE EAR DISORDER [None]
  - CHILLS [None]
  - VERTIGO [None]
  - LOWER RESPIRATORY TRACT INFECTION [None]
  - CLAVICLE FRACTURE [None]
